FAERS Safety Report 5570317-6 (Version None)
Quarter: 2007Q4

REPORT INFORMATION
  Report Type: 
  Country: None (occurrence: None)
  Receive Date: 20071219
  Receipt Date: 20071219
  Transmission Date: 20080405
  Serious: Yes (Life-Threatening, Hospitalization, Other)
  Sender: FDA-Public Use
  Company Number: None

PATIENT
  Age: 58 Year
  Sex: Male
  Weight: 71.6683 kg

DRUGS (3)
  1. REMICADE [Suspect]
     Indication: RHEUMATOID ARTHRITIS
     Dosage: BY IV EVERY 4 WEEKS IV DRIP
     Route: 041
     Dates: start: 20020701, end: 20021210
  2. HUMIRA [Suspect]
     Indication: RHEUMATOID ARTHRITIS
     Dosage: BY SHOT EVERY TWO WEEKS
     Dates: start: 20031101, end: 20041210
  3. ENBREL [Concomitant]

REACTIONS (4)
  - IMPAIRED WORK ABILITY [None]
  - MANTLE CELL LYMPHOMA [None]
  - NON-HODGKIN'S LYMPHOMA [None]
  - STEM CELL TRANSPLANT [None]
